FAERS Safety Report 18583469 (Version 2)
Quarter: 2020Q4

REPORT INFORMATION
  Report Type: Spontaneous
  Country: CA (occurrence: CA)
  Receive Date: 20201206
  Receipt Date: 20201218
  Transmission Date: 20210114
  Serious: Yes (Other)
  Sender: FDA-Public Use
  Company Number: CA-CELLTRION INC.-2020CA024299

PATIENT

DRUGS (6)
  1. INFLECTRA [Suspect]
     Active Substance: INFLIXIMAB-DYYB
     Dosage: 360 MG ((5 MG/KG) Q 2,6 WEEKS, THEN EVERY 8WEEKS)
     Route: 042
     Dates: start: 20200805
  2. INFLECTRA [Suspect]
     Active Substance: INFLIXIMAB-DYYB
     Indication: COLITIS ULCERATIVE
     Dosage: 360 MG ((5 MG/KG) Q 2,6 WEEKS, THEN EVERY 8WEEKS)
     Route: 042
     Dates: start: 20200619
  3. PREDNISONE. [Concomitant]
     Active Substance: PREDNISONE
     Dosage: UNK
  4. INFLECTRA [Suspect]
     Active Substance: INFLIXIMAB-DYYB
     Dosage: 360 MG ((5 MG/KG) Q 2,6 WEEKS, THEN EVERY 8WEEKS)
     Route: 042
     Dates: start: 20200708
  5. INFLECTRA [Suspect]
     Active Substance: INFLIXIMAB-DYYB
     Dosage: 360 MG ((5 MG/KG) Q 2,6 WEEKS, THEN EVERY 8WEEKS)
     Route: 042
     Dates: start: 20201127
  6. INFLECTRA [Suspect]
     Active Substance: INFLIXIMAB-DYYB
     Dosage: 360 MG ((5 MG/KG) Q 2,6 WEEKS, THEN EVERY 8WEEKS)
     Route: 042
     Dates: start: 20200930

REACTIONS (7)
  - Headache [Not Recovered/Not Resolved]
  - Condition aggravated [Not Recovered/Not Resolved]
  - Discomfort [Unknown]
  - Off label use [Unknown]
  - Inappropriate schedule of product administration [Unknown]
  - Arthralgia [Not Recovered/Not Resolved]
  - Pain in extremity [Not Recovered/Not Resolved]

NARRATIVE: CASE EVENT DATE: 20200708
